FAERS Safety Report 9514083 (Version 1)
Quarter: 2013Q3

REPORT INFORMATION
  Report Type: Spontaneous
  Country: US (occurrence: US)
  Receive Date: 20130910
  Receipt Date: 20130910
  Transmission Date: 20140515
  Serious: No
  Sender: FDA-Public Use
  Company Number: US-009507513-1308USA011468

PATIENT
  Sex: Male

DRUGS (3)
  1. VICTRELIS [Suspect]
     Dosage: 800 MG, TID (7-9 HOURS APART) WITH FOOD (START ON DAY 29 OF THERAPY)
     Route: 048
  2. PEGASYS [Suspect]
     Route: 065
  3. REBETOL [Suspect]
     Route: 065

REACTIONS (1)
  - Malaise [Unknown]
